FAERS Safety Report 5581122-9 (Version None)
Quarter: 2007Q4

REPORT INFORMATION
  Report Type: 
  Country: None (occurrence: None)
  Receive Date: 20071227
  Receipt Date: 20071219
  Transmission Date: 20080405
  Serious: Yes (Other)
  Sender: FDA-Public Use
  Company Number: 2007334712

PATIENT
  Age: 74 Year
  Sex: Female
  Weight: 62.6 kg

DRUGS (7)
  1. ROGAINE EXTRA STRENGTH (FOR MEN) [Suspect]
     Indication: ALOPECIA
     Dosage: 1 ML TWICE DAILY (2 IN 1 D), TOPICAL
     Route: 061
     Dates: start: 20070115
  2. SYNTHROID [Concomitant]
  3. DETROL [Concomitant]
  4. MULTI-VITAMINS [Concomitant]
  5. FOSAMAX [Concomitant]
  6. CALCIUM (CALCIUM) [Concomitant]
  7. VITAMIN C (VITAMIN C) [Concomitant]

REACTIONS (2)
  - APPLICATION SITE PRURITUS [None]
  - BLOOD PRESSURE INCREASED [None]
